FAERS Safety Report 5773019-6 (Version None)
Quarter: 2008Q2

REPORT INFORMATION
  Report Type: 
  Country: None (occurrence: None)
  Receive Date: 20080611
  Receipt Date: 20080529
  Transmission Date: 20081010
  Serious: Yes (Hospitalization)
  Sender: FDA-Public Use
  Company Number: 2008BI014320

PATIENT
  Age: 57 Year
  Sex: Female

DRUGS (1)
  1. AVONEX [Suspect]
     Indication: MULTIPLE SCLEROSIS
     Dosage: 30 UG; QW; IM
     Route: 030
     Dates: start: 20051111

REACTIONS (5)
  - ABDOMINAL PAIN UPPER [None]
  - FOREIGN BODY TRAUMA [None]
  - PAIN [None]
  - RESTLESSNESS [None]
  - UPPER LIMB FRACTURE [None]
